FAERS Safety Report 8312076-X (Version None)
Quarter: 2012Q2

REPORT INFORMATION
  Report Type: 
  Country: None (occurrence: None)
  Receive Date: 20120425
  Receipt Date: 20120425
  Transmission Date: 20120825
  Serious: Yes (Other)
  Sender: FDA-Public Use
  Company Number: CN-PFIZER INC-2012097670

PATIENT

DRUGS (1)
  1. EFFEXOR XR [Suspect]
     Indication: DEPRESSED MOOD
     Dosage: 75 MG DAILY
     Route: 048

REACTIONS (2)
  - EPILEPSY [None]
  - DEPRESSED MOOD [None]
